FAERS Safety Report 4616012-9 (Version None)
Quarter: 2005Q1

REPORT INFORMATION
  Report Type: 
  Country: None (occurrence: None)
  Receive Date: 20050318
  Receipt Date: 20050309
  Transmission Date: 20050727
  Serious: Yes (Hospitalization)
  Sender: FDA-Public Use
  Company Number: 2003-08-2186

PATIENT
  Age: 62 Year
  Sex: Male
  Weight: 60 kg

DRUGS (8)
  1. REBETOL [Suspect]
     Indication: HEPATITIS C
     Dosage: -800*MG/D ORAL
     Route: 048
     Dates: start: 20021202, end: 20030428
  2. REBETOL [Suspect]
     Indication: HEPATITIS C
     Dosage: -800*MG/D ORAL
     Route: 048
     Dates: start: 20021115
  3. INTRON A [Suspect]
     Indication: HEPATITIS C
     Dosage: -10MU*TIW INTRAMUSCULAR
     Route: 030
     Dates: start: 20021202, end: 20030818
  4. INTRON A [Suspect]
     Indication: HEPATITIS C
     Dosage: -10MU*TIW INTRAMUSCULAR
     Route: 030
     Dates: start: 20021115
  5. CILNIDIPINE [Concomitant]
  6. LEVOFLOXACIN [Concomitant]
  7. CELESTAMIN (BETAMETHASONE/DEXCHLORPHENIRAMINE MALEATE) [Concomitant]
  8. SERRAPEPTASE [Concomitant]

REACTIONS (2)
  - PULMONARY FIBROSIS [None]
  - UPPER RESPIRATORY TRACT INFLAMMATION [None]
